FAERS Safety Report 22635653 (Version 2)
Quarter: 2024Q4

REPORT INFORMATION
  Report Type: Spontaneous
  Country: US (occurrence: US)
  Receive Date: 20230623
  Receipt Date: 20241220
  Transmission Date: 20250114
  Serious: Yes (Other)
  Sender: MERCK
  Company Number: US-009507513-2107USA008794

PATIENT
  Sex: Male

DRUGS (3)
  1. TEMODAR [Suspect]
     Active Substance: TEMOZOLOMIDE
     Indication: Astrocytoma
     Dosage: UNK
  2. PAMIPARIB [Suspect]
     Active Substance: PAMIPARIB
     Indication: Astrocytoma
  3. CEMIPLIMAB [Suspect]
     Active Substance: CEMIPLIMAB
     Indication: Astrocytoma

REACTIONS (3)
  - Tumour necrosis [Unknown]
  - DNA mismatch repair protein gene mutation [Unknown]
  - Product use in unapproved indication [Unknown]
